FAERS Safety Report 21458625 (Version 1)
Quarter: 2022Q4

REPORT INFORMATION
  Report Type: Spontaneous
  Country: US (occurrence: US)
  Receive Date: 20221014
  Receipt Date: 20221014
  Transmission Date: 20230113
  Serious: No
  Sender: FDA-Public Use
  Company Number: US-PFIZER INC-PV202200014035

PATIENT
  Sex: Female

DRUGS (12)
  1. TOZINAMERAN [Suspect]
     Active Substance: TOZINAMERAN
     Indication: COVID-19 immunisation
     Dosage: DOSE 3 (BOOSTER), SINGLE
     Dates: start: 20211201, end: 20211201
  2. TOZINAMERAN [Suspect]
     Active Substance: TOZINAMERAN
     Dosage: DOSE 2 , SINGLE
     Dates: start: 20210407, end: 20210407
  3. TOZINAMERAN [Suspect]
     Active Substance: TOZINAMERAN
     Dosage: DOSE 1, SINGLE
     Dates: start: 20210313, end: 20210313
  4. MEDROL [Suspect]
     Active Substance: METHYLPREDNISOLONE
     Dosage: UNK
  5. HYALURONIC ACID [Suspect]
     Active Substance: HYALURONIC ACID
     Dosage: 0.2 ML
     Dates: start: 20220510
  6. HYLENEX RECOMBINANT [Suspect]
     Active Substance: HYALURONIDASE (HUMAN RECOMBINANT)
     Dosage: UNK [TOTAL OF 80 UNITS OF HYLENEX AT BOTH SITES]
     Dates: start: 20220516
  7. HYLENEX RECOMBINANT [Suspect]
     Active Substance: HYALURONIDASE (HUMAN RECOMBINANT)
     Dosage: UNK [40 MORE UNITS OF HYLENEX THE NEXT DAY]
     Dates: start: 20210517
  8. HYLENEX RECOMBINANT [Suspect]
     Active Substance: HYALURONIDASE (HUMAN RECOMBINANT)
     Dosage: UNK [40 MORE UNITS (HYLENEX)]
     Dates: start: 20220518
  9. KENALOG [Suspect]
     Active Substance: TRIAMCINOLONE ACETONIDE
     Dosage: UNK
     Dates: start: 20220518
  10. KENALOG [Suspect]
     Active Substance: TRIAMCINOLONE ACETONIDE
     Dosage: UNK
     Dates: start: 20220524
  11. PREDNISONE [Suspect]
     Active Substance: PREDNISONE
     Dosage: UNK
     Dates: start: 20220524
  12. BENADRYL [Suspect]
     Active Substance: DIPHENHYDRAMINE HYDROCHLORIDE
     Dosage: UNK

REACTIONS (6)
  - Vaccination site discolouration [Unknown]
  - Vaccination site erythema [Unknown]
  - Vaccination site swelling [Unknown]
  - Swelling [Unknown]
  - Hypersensitivity [Unknown]
  - Vascular occlusion [Unknown]
